FAERS Safety Report 9601351 (Version 1)
Quarter: 2013Q4

REPORT INFORMATION
  Report Type: Report from Study
  Country: FR (occurrence: FR)
  Receive Date: 20131007
  Receipt Date: 20131007
  Transmission Date: 20140711
  Serious: Yes (Hospitalization)
  Sender: FDA-Public Use
  Company Number: FR-ROCHE-1283660

PATIENT
  Sex: Female

DRUGS (5)
  1. BEVACIZUMAB [Suspect]
     Indication: LUNG NEOPLASM MALIGNANT
     Dosage: LAST CYCLE OF BEVACIZUMAB (MAINTENANCE THERAPY) ON 20/FEB/2013
     Route: 065
     Dates: start: 20090902
  2. PEMETREXED [Suspect]
     Indication: LUNG NEOPLASM MALIGNANT
     Route: 065
     Dates: start: 20090902
  3. CISPLATINE [Suspect]
     Indication: LUNG NEOPLASM MALIGNANT
     Route: 065
     Dates: start: 20090902
  4. RAMIPRIL [Concomitant]
     Route: 065
     Dates: start: 20111208
  5. IRBESARTAN [Concomitant]
     Route: 065
     Dates: start: 20121025

REACTIONS (1)
  - Glomerulonephropathy [Recovered/Resolved with Sequelae]
